FAERS Safety Report 4870514-9 (Version None)
Quarter: 2005Q4

REPORT INFORMATION
  Report Type: 
  Country: None (occurrence: None)
  Receive Date: 20051228
  Receipt Date: 20051216
  Transmission Date: 20060501
  Serious: Yes (Other)
  Sender: FDA-Public Use
  Company Number: 2005158159

PATIENT
  Age: 75 Year
  Sex: Male
  Weight: 95.2554 kg

DRUGS (17)
  1. DIFLUCAN [Suspect]
     Indication: ANAL CANDIDIASIS
     Dosage: 100 MG (100 MG, 1 IN 1 D), ORAL
     Route: 048
     Dates: start: 20051109, end: 20051129
  2. DIFLUCAN [Suspect]
     Indication: CANDIDIASIS
     Dosage: 100 MG (100 MG, 1 IN 1 D), ORAL
     Route: 048
     Dates: start: 20051109, end: 20051129
  3. DYAZIDE [Suspect]
     Indication: ILL-DEFINED DISORDER
  4. PROZAC [Suspect]
     Indication: ILL-DEFINED DISORDER
  5. ADVAIR DISKUS 100/50 [Concomitant]
  6. SEREVENT [Concomitant]
  7. TENORMIN [Concomitant]
  8. ACCUPRIL [Concomitant]
  9. PROZAC [Concomitant]
  10. ZOCOR [Concomitant]
  11. ASPIRIN [Concomitant]
  12. TIMOPTIC [Concomitant]
  13. MAXZIDE [Concomitant]
  14. HYTRIN [Concomitant]
  15. PRILOSEC [Concomitant]
  16. ALEVE [Concomitant]
  17. OCUVITE (ASCORBIC ACID, RETINOL, TOCOPHEROL) [Concomitant]

REACTIONS (1)
  - SCOTOMA [None]
